FAERS Safety Report 12047287 (Version 2)
Quarter: 2016Q1

REPORT INFORMATION
  Report Type: Spontaneous
  Country: US (occurrence: US)
  Receive Date: 20160208
  Receipt Date: 20160229
  Transmission Date: 20160526
  Serious: Yes (Death)
  Sender: FDA-Public Use
  Company Number: US-ACTELION-A-NJ2016-131106

PATIENT
  Age: 47 Year
  Sex: Male

DRUGS (15)
  1. LEVEMIR [Concomitant]
     Active Substance: INSULIN DETEMIR
  2. TESTOSTERONE. [Concomitant]
     Active Substance: TESTOSTERONE
  3. MIDODRINE [Concomitant]
     Active Substance: MIDODRINE
  4. ASPIRIN. [Concomitant]
     Active Substance: ASPIRIN
  5. TRACLEER [Suspect]
     Active Substance: BOSENTAN
     Indication: PULMONARY HYPERTENSION
     Dosage: 62.5 MG, UNK
     Route: 048
     Dates: end: 20151222
  6. KEPPRA [Concomitant]
     Active Substance: LEVETIRACETAM
  7. LIPITOR [Concomitant]
     Active Substance: ATORVASTATIN CALCIUM
  8. VENTAVIS [Suspect]
     Active Substance: ILOPROST
     Indication: PULMONARY HYPERTENSION
     Dosage: UNK
     Route: 055
  9. LACTOBACILLUS [Concomitant]
     Active Substance: LACTOBACILLUS ACIDOPHILUS
  10. PROTONIX [Concomitant]
     Active Substance: PANTOPRAZOLE SODIUM
  11. NYSTATIN. [Concomitant]
     Active Substance: NYSTATIN
     Route: 061
  12. VITAMIN B [Concomitant]
     Active Substance: VITAMIN B
  13. COUMADIN [Concomitant]
     Active Substance: WARFARIN SODIUM
  14. METHIMAZOLE. [Concomitant]
     Active Substance: METHIMAZOLE
  15. VITAMIN C [Concomitant]
     Active Substance: ASCORBIC ACID

REACTIONS (1)
  - Death [Fatal]

NARRATIVE: CASE EVENT DATE: 20160110
